FAERS Safety Report 14654589 (Version 2)
Quarter: 2018Q2

REPORT INFORMATION
  Report Type: Spontaneous
  Country: FR (occurrence: FR)
  Receive Date: 20180319
  Receipt Date: 20180417
  Transmission Date: 20180711
  Serious: Yes (Death, Life-Threatening, Hospitalization, Other)
  Sender: FDA-Public Use
  Company Number: FR-PFIZER INC-2006063621

PATIENT
  Age: 26 Year
  Sex: Female

DRUGS (8)
  1. SEROPLEX [Suspect]
     Active Substance: ESCITALOPRAM OXALATE
     Dosage: 15 MG, DAILY
     Route: 048
     Dates: start: 20060303, end: 20060317
  2. TIAPRIDAL [Suspect]
     Active Substance: TIAPRIDE HYDROCHLORIDE
     Dosage: 100 MG, 1X/DAY
     Route: 048
     Dates: start: 20060303, end: 20060317
  3. IMOVANE [Concomitant]
     Active Substance: ZOPICLONE
     Dosage: 7 MG, UNK
     Route: 065
     Dates: start: 20060309
  4. CYTOTEC [Suspect]
     Active Substance: MISOPROSTOL
     Dosage: 400 UG, 2X/DAY(TWICE TWO TABLETS AT 200 ?G)
     Route: 067
     Dates: start: 20060209
  5. LEXAPRO [Suspect]
     Active Substance: ESCITALOPRAM OXALATE
     Dosage: 15 MG, 1X/DAY
     Route: 048
     Dates: start: 20060303, end: 20060317
  6. LYSANXIA [Concomitant]
     Active Substance: PRAZEPAM
     Dosage: 10 MG TO 40 MG
     Route: 065
     Dates: start: 20060309
  7. ABILIFY [Suspect]
     Active Substance: ARIPIPRAZOLE
     Dosage: 15 MG, 1X/DAY
     Route: 048
     Dates: start: 20060309, end: 20060317
  8. MIFEGYNE [Concomitant]
     Active Substance: MIFEPRISTONE
     Dosage: 600 MG, UNK
     Route: 048
     Dates: start: 20060207

REACTIONS (7)
  - Product use issue [Unknown]
  - Respiratory arrest [Fatal]
  - Malaise [Recovered/Resolved]
  - Chills [Recovered/Resolved]
  - Cardiac arrest [Fatal]
  - Multiple organ dysfunction syndrome [Fatal]
  - Metrorrhagia [Fatal]

NARRATIVE: CASE EVENT DATE: 20060311
